FAERS Safety Report 12453291 (Version 1)
Quarter: 2016Q2

REPORT INFORMATION
  Report Type: Spontaneous
  Country: RU (occurrence: RU)
  Receive Date: 20160609
  Receipt Date: 20160609
  Transmission Date: 20160815
  Serious: Yes (Hospitalization)
  Sender: FDA-Public Use
  Company Number: RU-MYLANLABS-2016M1023705

PATIENT

DRUGS (1)
  1. AMLODIPINE [Suspect]
     Active Substance: AMLODIPINE BESYLATE
     Indication: PRODUCT USED FOR UNKNOWN INDICATION
     Dosage: 200 MG
     Route: 065

REACTIONS (10)
  - Toxicity to various agents [Recovering/Resolving]
  - Neuromyopathy [Unknown]
  - Sepsis [Recovering/Resolving]
  - Multiple organ dysfunction syndrome [Recovering/Resolving]
  - Suicide attempt [Recovering/Resolving]
  - Septic shock [Recovering/Resolving]
  - Atrioventricular dissociation [Unknown]
  - Defect conduction intraventricular [Unknown]
  - Intentional overdose [Recovering/Resolving]
  - Pleural effusion [Unknown]

NARRATIVE: CASE EVENT DATE: 201501
